FAERS Safety Report 5436939-8 (Version None)
Quarter: 2007Q3

REPORT INFORMATION
  Report Type: 
  Country: None (occurrence: None)
  Receive Date: 20070831
  Receipt Date: 20070823
  Transmission Date: 20080115
  Serious: Yes (Hospitalization)
  Sender: FDA-Public Use
  Company Number: FR-ASTRAZENECA-2007CG01219

PATIENT
  Age: 58 Year
  Sex: Male

DRUGS (6)
  1. CASODEX [Suspect]
     Indication: PROSTATE CANCER
     Route: 048
     Dates: start: 20070701
  2. ZOLADEX [Suspect]
     Indication: PROSTATE CANCER
     Route: 058
     Dates: start: 20070701
  3. COLCHICINE [Suspect]
     Indication: CHONDROCALCINOSIS
     Dates: start: 20070701, end: 20070701
  4. ACETAMINOPHEN W/ PROPOXYPHENE HCL [Suspect]
     Indication: CHONDROCALCINOSIS
     Dates: start: 20070701, end: 20070701
  5. COAPROVEL [Concomitant]
     Indication: HYPERTENSION
  6. LIPANTHYL [Concomitant]
     Indication: DYSLIPIDAEMIA

REACTIONS (1)
  - LEUKOCYTOCLASTIC VASCULITIS [None]
